FAERS Safety Report 11163645 (Version 2)
Quarter: 2015Q3

REPORT INFORMATION
  Report Type: Spontaneous
  Country: US (occurrence: US)
  Receive Date: 20150604
  Receipt Date: 20150716
  Transmission Date: 20151125
  Serious: Yes (Death, Other)
  Sender: FDA-Public Use
  Company Number: US-AMGEN-USASP2015053345

PATIENT
  Age: 85 Year
  Sex: Female
  Weight: 77.98 kg

DRUGS (1)
  1. PROLIA [Suspect]
     Active Substance: DENOSUMAB
     Indication: OSTEOPOROSIS
     Dosage: 60 MG, Q6MO
     Route: 058

REACTIONS (3)
  - Cerebrovascular accident [Fatal]
  - Hip fracture [Recovering/Resolving]
  - Fall [Unknown]
